FAERS Safety Report 6315322-7 (Version None)
Quarter: 2009Q3

REPORT INFORMATION
  Report Type: 
  Country: None (occurrence: None)
  Receive Date: 20090819
  Receipt Date: 20090814
  Transmission Date: 20100115
  Serious: Yes (Life-Threatening)
  Sender: FDA-Public Use
  Company Number: JP-GILEAD-2009-0023728

PATIENT
  Sex: Male

DRUGS (6)
  1. TRUVADA [Suspect]
     Indication: HIV INFECTION
     Route: 048
     Dates: start: 20061111, end: 20090216
  2. NORVIA [Suspect]
     Indication: HIV INFECTION
     Dates: start: 20061111, end: 20090216
  3. LEXIVA [Suspect]
     Indication: HIV INFECTION
     Dates: start: 20061111, end: 20090216
  4. RETROVIR [Concomitant]
     Indication: HIV INFECTION
     Dates: start: 20090217
  5. STOCRIN [Concomitant]
     Indication: HIV INFECTION
     Dates: start: 20090217
  6. ISENTRESS [Concomitant]
     Indication: HIV INFECTION
     Dates: start: 20090217

REACTIONS (1)
  - LYMPHOMA [None]
